FAERS Safety Report 8791529 (Version 1)
Quarter: 2012Q4

REPORT INFORMATION
  Report Type: Spontaneous
  Country: US (occurrence: None)
  Receive Date: 20120914
  Receipt Date: 20120914
  Transmission Date: 20130627
  Serious: Yes (Death)
  Sender: FDA-Public Use
  Company Number: None

PATIENT
  Sex: Male
  Weight: 72 kg

DRUGS (7)
  1. XARELTO [Suspect]
     Indication: ATRIAL FIBRILLATION
     Dosage: 20mg once a day po
     Route: 048
  2. AMIODARON [Concomitant]
  3. SOTALOL [Concomitant]
  4. DIOVAN [Concomitant]
  5. PRAVASTATIN [Concomitant]
  6. VENLAFAXINE [Concomitant]
  7. ASPIRIN [Concomitant]

REACTIONS (5)
  - Haemorrhage intracranial [None]
  - Respiratory failure [None]
  - Cerebral atrophy [None]
  - Fall [None]
  - Unresponsive to stimuli [None]
